FAERS Safety Report 8041222-0 (Version None)
Quarter: 2012Q1

REPORT INFORMATION
  Report Type: 
  Country: None (occurrence: None)
  Receive Date: 20120112
  Receipt Date: 20120102
  Transmission Date: 20120608
  Serious: No
  Sender: FDA-Public Use
  Company Number: US-PFIZER INC-2012000517

PATIENT
  Sex: Female
  Weight: 95.238 kg

DRUGS (3)
  1. AMBIEN [Concomitant]
     Indication: SLEEP DISORDER
     Dosage: UNK
  2. CHANTIX [Suspect]
     Dosage: UNK
     Route: 048
  3. CHANTIX [Suspect]
     Indication: SMOKING CESSATION THERAPY
     Dosage: 0.5 MG, 1X/DAY
     Route: 048
     Dates: start: 20111226

REACTIONS (1)
  - ANXIETY [None]
